FAERS Safety Report 5724839-5 (Version None)
Quarter: 2008Q2

REPORT INFORMATION
  Report Type: 
  Country: None (occurrence: None)
  Receive Date: 20080430
  Receipt Date: 20080430
  Transmission Date: 20081010
  Serious: Yes (Hospitalization)
  Sender: FDA-Public Use
  Company Number: None

PATIENT
  Age: 78 Year
  Sex: Male

DRUGS (1)
  1. NIFEDIPINE [Suspect]
     Indication: HYPERTENSION
     Dosage: 30 MG EVERY DAY PO
     Route: 048
     Dates: start: 20070405, end: 20070426

REACTIONS (7)
  - BLISTER [None]
  - BLOOD PRESSURE INCREASED [None]
  - ERYTHEMA [None]
  - OEDEMA PERIPHERAL [None]
  - POLLAKIURIA [None]
  - RASH GENERALISED [None]
  - SKIN WARM [None]
